FAERS Safety Report 13840624 (Version 2)
Quarter: 2020Q3

REPORT INFORMATION
  Report Type: Report from Study
  Country: US (occurrence: US)
  Receive Date: 20170807
  Receipt Date: 20170901
  Transmission Date: 20201105
  Serious: Yes (Hospitalization)
  Sender: FDA-Public Use
  Company Number: US-ASTRAZENECA-2017SE79638

PATIENT
  Age: 53 Year
  Sex: Male

DRUGS (2)
  1. DURVALUMAB. [Suspect]
     Active Substance: DURVALUMAB
     Indication: ANAPLASTIC THYROID CANCER
     Route: 042
     Dates: start: 20170512
  2. TREMELIMUMAB. [Suspect]
     Active Substance: TREMELIMUMAB
     Indication: ANAPLASTIC THYROID CANCER
     Route: 042
     Dates: start: 20170512

REACTIONS (3)
  - Platelet count decreased [Recovered/Resolved]
  - Non-cardiac chest pain [Recovered/Resolved]
  - Anaemia [Recovered/Resolved]

NARRATIVE: CASE EVENT DATE: 20170730
